FAERS Safety Report 12328381 (Version 2)
Quarter: 2016Q2

REPORT INFORMATION
  Report Type: Report from Study
  Country: US (occurrence: US)
  Receive Date: 20160503
  Receipt Date: 20160622
  Transmission Date: 20160815
  Serious: Yes (Hospitalization, Other)
  Sender: FDA-Public Use
  Company Number: US-GILEAD-2016-0210079

PATIENT
  Age: 77 Year
  Sex: Female

DRUGS (1)
  1. IDELALISIB [Suspect]
     Active Substance: IDELALISIB
     Indication: PRODUCT USED FOR UNKNOWN INDICATION
     Dosage: 150 MG, BID
     Route: 048
     Dates: start: 20160326

REACTIONS (5)
  - Lung operation [Unknown]
  - Unevaluable event [Unknown]
  - Dysgeusia [Unknown]
  - Pneumonia [Unknown]
  - Nausea [Unknown]
